FAERS Safety Report 7778600-0 (Version None)
Quarter: 2011Q3

REPORT INFORMATION
  Report Type: 
  Country: None (occurrence: None)
  Receive Date: 20110926
  Receipt Date: 20110919
  Transmission Date: 20111222
  Serious: Yes (Other)
  Sender: FDA-Public Use
  Company Number: CN-PFIZER INC-2011221831

PATIENT
  Age: 82 Year
  Sex: Male

DRUGS (1)
  1. GLIPIZIDE [Suspect]
     Dosage: 5 MG 1X/DAY BEFORE BREAKFAST AND 2.5 MG 1X/DAY BEFORE LUNCH
     Route: 048

REACTIONS (4)
  - OEDEMA PERIPHERAL [None]
  - PURPURA [None]
  - HYPERSENSITIVITY [None]
  - PRURITUS [None]
